FAERS Safety Report 20448932 (Version 4)
Quarter: 2022Q1

REPORT INFORMATION
  Report Type: Spontaneous
  Country: SK (occurrence: SK)
  Receive Date: 20220209
  Receipt Date: 20220330
  Transmission Date: 20220423
  Serious: Yes (Other)
  Sender: FDA-Public Use
  Company Number: SK-PFIZER INC-202200179280

PATIENT
  Age: 47 Year
  Sex: Female

DRUGS (3)
  1. XANAX [Suspect]
     Active Substance: ALPRAZOLAM
     Indication: Panic disorder
     Dosage: 1 MG, 1X/DAY (MORNING; UPJOHN)
     Route: 048
  2. XANAX [Suspect]
     Active Substance: ALPRAZOLAM
     Indication: Depression
     Dosage: 1 MG, 2X/DAY (NOON AND EVENING; PFIZER)
     Route: 048
     Dates: end: 20220209
  3. XANAX [Suspect]
     Active Substance: ALPRAZOLAM
     Indication: Anxiety
     Dosage: 1-1/2-1, MORNING 1 MG, NOON 0.5 MG, EVENING 1 MG
     Route: 048
     Dates: start: 20220209

REACTIONS (12)
  - Therapeutic product effect incomplete [Recovered/Resolved]
  - Oesophageal obstruction [Recovering/Resolving]
  - Oropharyngeal discomfort [Recovering/Resolving]
  - Product size issue [Recovering/Resolving]
  - Chest discomfort [Recovering/Resolving]
  - Chest pain [Recovering/Resolving]
  - Headache [Recovering/Resolving]
  - Abdominal pain [Recovering/Resolving]
  - Cognitive disorder [Recovering/Resolving]
  - Feeling abnormal [Recovering/Resolving]
  - Salivary hypersecretion [Recovering/Resolving]
  - Nausea [Recovering/Resolving]

NARRATIVE: CASE EVENT DATE: 20220101
